FAERS Safety Report 17799155 (Version 2)
Quarter: 2020Q3

REPORT INFORMATION
  Report Type: Report from Study
  Country: GR (occurrence: GR)
  Receive Date: 20200518
  Receipt Date: 20200725
  Transmission Date: 20201102
  Serious: Yes (Death, Hospitalization)
  Sender: FDA-Public Use
  Company Number: GR-TAKEDA-2020TUS022589

PATIENT
  Age: 74 Year
  Sex: Male
  Weight: 95 kg

DRUGS (3)
  1. DECADRON [Concomitant]
     Active Substance: DEXAMETHASONE
     Indication: PLASMA CELL MYELOMA
     Dosage: 40 MILLIGRAM
     Route: 048
     Dates: start: 20190130, end: 20200221
  2. BORTEZOMIB. [Suspect]
     Active Substance: BORTEZOMIB
     Indication: PLASMA CELL MYELOMA
     Dosage: 2.5 MILLIGRAM
     Route: 058
     Dates: start: 20190130, end: 20200123
  3. DARZALEX [Concomitant]
     Active Substance: DARATUMUMAB
     Indication: PLASMA CELL MYELOMA
     Dosage: 1000 MILLIGRAM, 1/WEEK
     Route: 048
     Dates: start: 20190130, end: 20191127

REACTIONS (2)
  - Respiratory tract infection [Fatal]
  - Pyrexia [Fatal]

NARRATIVE: CASE EVENT DATE: 20200212
